FAERS Safety Report 9495174 (Version 2)
Quarter: 2013Q3

REPORT INFORMATION
  Report Type: Spontaneous
  Country: US (occurrence: US)
  Receive Date: 20130903
  Receipt Date: 20130911
  Transmission Date: 20140515
  Serious: No
  Sender: FDA-Public Use
  Company Number: US-TEVA-429418USA

PATIENT
  Sex: Female

DRUGS (1)
  1. QVAR [Suspect]
     Indication: ASTHMA
     Dosage: 2 PUFFS TWICE A DAY
     Dates: start: 201210

REACTIONS (2)
  - Drug effect delayed [Unknown]
  - Product packaging quantity issue [Unknown]
